FAERS Safety Report 10084787 (Version 1)
Quarter: 2014Q2

REPORT INFORMATION
  Report Type: Spontaneous
  Country: None (occurrence: None)
  Receive Date: 20140415
  Receipt Date: 20140415
  Transmission Date: 20141212
  Serious: Yes (Other)
  Sender: FDA-Public Use
  Company Number: AUR-APL-2009-00316

PATIENT
  Age: 60 Year
  Sex: Male

DRUGS (2)
  1. ONDANSETRON [Suspect]
     Indication: PRODUCT USED FOR UNKNOWN INDICATION
     Route: 042
  2. GLYCOPYRROLATE [Concomitant]

REACTIONS (3)
  - Respiratory arrest [None]
  - Loss of consciousness [None]
  - Heart rate decreased [None]
